FAERS Safety Report 22627193 (Version 1)
Quarter: 2023Q2

REPORT INFORMATION
  Report Type: Spontaneous
  Country: CA (occurrence: CA)
  Receive Date: 20230622
  Receipt Date: 20230622
  Transmission Date: 20230722
  Serious: Yes (Other)
  Sender: FDA-Public Use
  Company Number: CA-JNJFOC-20230631942

PATIENT

DRUGS (1)
  1. NICORETTE [Suspect]
     Active Substance: NICOTINE
     Indication: Tobacco user
     Dosage: 2 DF, TID
     Route: 048

REACTIONS (2)
  - Bladder neoplasm [Unknown]
  - Intentional product use issue [Unknown]
